FAERS Safety Report 9900239 (Version 1)
Quarter: 2014Q1

REPORT INFORMATION
  Report Type: Spontaneous
  Country: BR (occurrence: BR)
  Receive Date: 20140215
  Receipt Date: 20140215
  Transmission Date: 20141002
  Serious: Yes (Other)
  Sender: FDA-Public Use
  Company Number: BR-ROCHE-1348815

PATIENT
  Age: 46 Year
  Sex: Female
  Weight: 74 kg

DRUGS (2)
  1. RIVOTRIL [Suspect]
     Indication: PRODUCT USED FOR UNKNOWN INDICATION
     Route: 065
  2. PAROXETINE [Concomitant]

REACTIONS (2)
  - Hallucination, auditory [Unknown]
  - Drug ineffective [Unknown]
